FAERS Safety Report 17574912 (Version 8)
Quarter: 2024Q4

REPORT INFORMATION
  Report Type: Report from Study
  Country: US (occurrence: US)
  Receive Date: 20200324
  Receipt Date: 20241112
  Transmission Date: 20250115
  Serious: Yes (Other)
  Sender: ROCHE
  Company Number: US-ROCHE-2567884

PATIENT
  Age: 85 Year
  Sex: Male

DRUGS (15)
  1. ESBRIET [Suspect]
     Active Substance: PIRFENIDONE
     Indication: Idiopathic pulmonary fibrosis
     Dosage: TAKE 1 TABLET BY MOUTH 3 TIMES A DAY
     Route: 048
  2. ESBRIET [Suspect]
     Active Substance: PIRFENIDONE
     Route: 048
  3. ESBRIET [Suspect]
     Active Substance: PIRFENIDONE
     Route: 048
  4. ACETAMINOPHEN [Concomitant]
     Active Substance: ACETAMINOPHEN
  5. ALBUTEROL SULFATE [Concomitant]
     Active Substance: ALBUTEROL SULFATE
  6. ASPIRIN [Concomitant]
     Active Substance: ASPIRIN
  7. ATORVASTATIN [Concomitant]
     Active Substance: ATORVASTATIN
  8. CHOLECALCIFEROL [Concomitant]
     Active Substance: CHOLECALCIFEROL
  9. CYMBALTA [Concomitant]
     Active Substance: DULOXETINE HYDROCHLORIDE
  10. NEURONTIN [Concomitant]
     Active Substance: GABAPENTIN
  11. NIZORAL [Concomitant]
     Active Substance: KETOCONAZOLE
  12. KEPPRA [Concomitant]
     Active Substance: LEVETIRACETAM
  13. SYNTHROID [Concomitant]
     Active Substance: LEVOTHYROXINE SODIUM
  14. DILANTIN [Concomitant]
     Active Substance: PHENYTOIN
  15. VALCYCLOX [Concomitant]

REACTIONS (4)
  - Cerebrovascular accident [Unknown]
  - Dysphemia [Unknown]
  - Memory impairment [Unknown]
  - Balance disorder [Unknown]
